FAERS Safety Report 9684580 (Version 1)
Quarter: 2013Q4

REPORT INFORMATION
  Report Type: Spontaneous
  Country: US (occurrence: US)
  Receive Date: 20131112
  Receipt Date: 20131112
  Transmission Date: 20140711
  Serious: No
  Sender: FDA-Public Use
  Company Number: US-AMGEN-USASP2013060089

PATIENT
  Sex: Male

DRUGS (1)
  1. ARANESP [Suspect]
     Indication: HAEMOGLOBIN DECREASED
     Dosage: UNK
     Route: 065

REACTIONS (3)
  - Wrong technique in drug usage process [Unknown]
  - Visual acuity reduced [Unknown]
  - Haemoglobin decreased [Unknown]
